FAERS Safety Report 7021369-8 (Version None)
Quarter: 2010Q3

REPORT INFORMATION
  Report Type: 
  Country: None (occurrence: None)
  Receive Date: 20100929
  Receipt Date: 20100920
  Transmission Date: 20110219
  Serious: No
  Sender: FDA-Public Use
  Company Number: US-PFIZER INC-2010119183

PATIENT
  Sex: Female
  Weight: 72.562 kg

DRUGS (1)
  1. FELDENE [Suspect]
     Indication: ARTHRITIS
     Dosage: 20 MG, 1X/DAY
     Route: 048
     Dates: start: 19750101, end: 20100101

REACTIONS (1)
  - BLOOD PRESSURE INCREASED [None]
